FAERS Safety Report 22228902 (Version 1)
Quarter: 2023Q2

REPORT INFORMATION
  Report Type: Spontaneous
  Country: US (occurrence: None)
  Receive Date: 20230418
  Receipt Date: 20230418
  Transmission Date: 20230721
  Serious: Yes (Other)
  Sender: FDA-Public Use
  Company Number: None

PATIENT
  Age: 25 Year
  Sex: Female
  Weight: 101.6 kg

DRUGS (1)
  1. PARAGARD T 380A [Suspect]
     Active Substance: COPPER
     Dates: start: 20210224

REACTIONS (3)
  - Menstruation delayed [None]
  - Pregnancy test positive [None]
  - Pregnancy with contraceptive device [None]

NARRATIVE: CASE EVENT DATE: 20230412
